FAERS Safety Report 18505607 (Version 1)
Quarter: 2020Q4

REPORT INFORMATION
  Report Type: Report from Study
  Country: CA (occurrence: CA)
  Receive Date: 20201116
  Receipt Date: 20201116
  Transmission Date: 20210114
  Serious: Yes (Other)
  Sender: FDA-Public Use
  Company Number: PHHY2018CA000849

PATIENT
  Age: 6 Year
  Sex: Female

DRUGS (4)
  1. EXJADE [Suspect]
     Active Substance: DEFERASIROX
     Indication: IRON OVERLOAD
     Dosage: UNK
     Route: 048
     Dates: start: 201701
  2. DESFERAL [Suspect]
     Active Substance: DEFEROXAMINE MESYLATE
     Indication: PRODUCT USED FOR UNKNOWN INDICATION
     Dosage: 500 MG, UNK
     Route: 042
     Dates: start: 201701
  3. HEPARIN [Concomitant]
     Active Substance: HEPARIN SODIUM
     Indication: PRODUCT USED FOR UNKNOWN INDICATION
     Dosage: 3 ML, UNK
     Route: 065
  4. JADENU [Suspect]
     Active Substance: DEFERASIROX
     Indication: IRON OVERLOAD
     Dosage: 360 MG, QD
     Route: 048
     Dates: start: 201804

REACTIONS (19)
  - Haemoglobin decreased [Unknown]
  - Haematocrit decreased [Unknown]
  - Lymphocyte count increased [Unknown]
  - Reticulocyte count decreased [Unknown]
  - Blood albumin decreased [Unknown]
  - Bone marrow failure [Unknown]
  - Granulocyte count increased [Unknown]
  - Rash macular [Recovering/Resolving]
  - Red blood cell count decreased [Unknown]
  - Product dose omission issue [Unknown]
  - Blood growth hormone decreased [Unknown]
  - Serum ferritin increased [Recovering/Resolving]
  - Neutrophil count decreased [Unknown]
  - Haemochromatosis [Unknown]
  - Ejection fraction decreased [Unknown]
  - Reticulocyte haemoglobin equivalent [Unknown]
  - Mean cell volume decreased [Unknown]
  - Aspartate aminotransferase increased [Unknown]
  - Alanine aminotransferase increased [Unknown]

NARRATIVE: CASE EVENT DATE: 20171127
